FAERS Safety Report 7081806-X (Version None)
Quarter: 2010Q4

REPORT INFORMATION
  Report Type: 
  Country: None (occurrence: None)
  Receive Date: 20101103
  Receipt Date: 20101021
  Transmission Date: 20110411
  Serious: Yes (Hospitalization, Other)
  Sender: FDA-Public Use
  Company Number: US-ELI_LILLY_AND_COMPANY-US201008003013

PATIENT
  Sex: Female

DRUGS (7)
  1. CYMBALTA [Suspect]
     Indication: DEPRESSION
     Dosage: 60 MG, DAILY (1/D)
  2. FORTEO [Concomitant]
     Indication: OSTEOPOROSIS
     Dosage: 20 UG, UNK
  3. NEXIUM [Concomitant]
  4. CENTRUM SILVER [Concomitant]
  5. CALTRATE [Concomitant]
  6. ANTIBIOTIC /00259001/ [Concomitant]
  7. CRANBERRY [Concomitant]

REACTIONS (4)
  - FALL [None]
  - FATIGUE [None]
  - HIP FRACTURE [None]
  - SINUS DISORDER [None]
